FAERS Safety Report 13466552 (Version 1)
Quarter: 2017Q2

REPORT INFORMATION
  Report Type: Spontaneous
  Country: US (occurrence: US)
  Receive Date: 20170421
  Receipt Date: 20170421
  Transmission Date: 20170830
  Serious: Yes (Other)
  Sender: FDA-Public Use
  Company Number: US-MYLANLABS-2017M1024231

PATIENT

DRUGS (6)
  1. BLEOMYCIN [Concomitant]
     Active Substance: BLEOMYCIN SULFATE
     Indication: CHORIOCARCINOMA
     Route: 065
  2. CISPLATIN. [Suspect]
     Active Substance: CISPLATIN
     Indication: CHORIOCARCINOMA
     Dosage: COMPLETED 3 MONTHS OF TREATMENT PRIOR TO RECEIVING ONE MORE CYCLE
     Route: 065
  3. IFOSFAMIDE. [Suspect]
     Active Substance: IFOSFAMIDE
     Indication: CHORIOCARCINOMA
     Dosage: ONE CYCLE
     Route: 065
  4. ETOPOSIDE. [Concomitant]
     Active Substance: ETOPOSIDE
     Indication: CHORIOCARCINOMA
     Route: 065
  5. PACLITAXEL. [Suspect]
     Active Substance: PACLITAXEL
     Indication: CHORIOCARCINOMA
     Dosage: ONE CYCLE
     Route: 065
  6. MESNA. [Suspect]
     Active Substance: MESNA
     Indication: CHORIOCARCINOMA
     Dosage: ONE CYCLE
     Route: 065

REACTIONS (3)
  - Renal tubular necrosis [Unknown]
  - Renal injury [Unknown]
  - Febrile neutropenia [Unknown]
